FAERS Safety Report 24013470 (Version 1)
Quarter: 2024Q2

REPORT INFORMATION
  Report Type: Spontaneous
  Country: FR (occurrence: FR)
  Receive Date: 20240626
  Receipt Date: 20240626
  Transmission Date: 20240716
  Serious: Yes (Hospitalization)
  Sender: FDA-Public Use
  Company Number: None

PATIENT
  Age: 9 Year
  Sex: Female
  Weight: 26 kg

DRUGS (2)
  1. HUMIRA [Interacting]
     Active Substance: ADALIMUMAB
     Indication: Juvenile idiopathic arthritis
     Route: 058
     Dates: start: 2019, end: 20240501
  2. PRIORIX [Interacting]
     Active Substance: MEASLES-MUMPS-RUBELLA VIRUS VACCINE
     Indication: Immunisation
     Dosage: TIME INTERVAL: 1 TOTAL: D2
     Route: 030
     Dates: start: 20240420, end: 20240420

REACTIONS (3)
  - Drug interaction [Recovered/Resolved]
  - Uveitis [Recovering/Resolving]
  - Meningitis [Recovered/Resolved]

NARRATIVE: CASE EVENT DATE: 20240512
